FAERS Safety Report 11087382 (Version 3)
Quarter: 2016Q2

REPORT INFORMATION
  Report Type: Spontaneous
  Country: US (occurrence: US)
  Receive Date: 20150504
  Receipt Date: 20160504
  Transmission Date: 20160815
  Serious: Yes (Death, Other)
  Sender: FDA-Public Use
  Company Number: US-AUROBINDO-AUR-APL-2015-03919

PATIENT
  Age: 47 Year
  Sex: Female
  Weight: 118 kg

DRUGS (2)
  1. HYDROCODONE BITARTRATE AND ACETAMINOPHEN [Concomitant]
     Active Substance: ACETAMINOPHEN\HYDROCODONE BITARTRATE
     Indication: PRODUCT USED FOR UNKNOWN INDICATION
     Dosage: UNK
     Route: 065
  2. GABAPENTIN 600MG [Suspect]
     Active Substance: GABAPENTIN
     Indication: PRODUCT USED FOR UNKNOWN INDICATION
     Dosage: UNK
     Route: 065

REACTIONS (10)
  - Dyspnoea [Unknown]
  - Breath sounds abnormal [Unknown]
  - Cough [Unknown]
  - Toxicity to various agents [Fatal]
  - Wheezing [Unknown]
  - Drug level increased [Fatal]
  - Hypersomnia [Unknown]
  - Pneumonia [Fatal]
  - Respiratory depression [Fatal]
  - Peripheral coldness [Unknown]
